FAERS Safety Report 14225488 (Version 2)
Quarter: 2018Q1

REPORT INFORMATION
  Report Type: Spontaneous
  Country: US (occurrence: US)
  Receive Date: 20171127
  Receipt Date: 20180323
  Transmission Date: 20180508
  Serious: Yes (Hospitalization)
  Sender: FDA-Public Use
  Company Number: US-PFIZER INC-2017508620

PATIENT
  Age: 65 Year
  Sex: Female
  Weight: 63.5 kg

DRUGS (4)
  1. VENLAFAXINE HCL [Suspect]
     Active Substance: VENLAFAXINE HYDROCHLORIDE
     Indication: ANXIETY
     Dosage: 75 MG, 1X/DAY
     Dates: start: 201709, end: 201710
  2. MELOXICAM. [Concomitant]
     Active Substance: MELOXICAM
     Dosage: 1 DF, 1X/DAY
     Route: 048
  3. PROLIA [Concomitant]
     Active Substance: DENOSUMAB
     Indication: OSTEOPOROSIS
     Dosage: INJECTION TWICE A YEAR
     Dates: start: 201611
  4. MELOXICAM. [Concomitant]
     Active Substance: MELOXICAM
     Indication: OSTEOARTHRITIS
     Dosage: A LARGER DOSE
     Route: 048
     Dates: start: 201404

REACTIONS (9)
  - Drug ineffective [Recovered/Resolved]
  - Nasopharyngitis [Unknown]
  - Irritability [Not Recovered/Not Resolved]
  - Condition aggravated [Recovered/Resolved]
  - Emotional disorder [Not Recovered/Not Resolved]
  - Stress [Not Recovered/Not Resolved]
  - Malaise [Not Recovered/Not Resolved]
  - Psychiatric symptom [Not Recovered/Not Resolved]
  - Extra dose administered [Recovered/Resolved]

NARRATIVE: CASE EVENT DATE: 201710
